FAERS Safety Report 18540418 (Version 1)
Quarter: 2020Q4

REPORT INFORMATION
  Report Type: Spontaneous
  Country: US (occurrence: US)
  Receive Date: 20201124
  Receipt Date: 20201124
  Transmission Date: 20210114
  Serious: Yes (Death)
  Sender: FDA-Public Use
  Company Number: US-PFIZER INC-2020284526

PATIENT
  Age: 79 Year
  Sex: Female

DRUGS (1)
  1. RETACRIT [Suspect]
     Active Substance: EPOETIN ALFA-EPBX
     Dosage: UNK ((DOSAGE: 60,000 UNITS, ENROLLMENT FORM STATES: FREQUENCY: Q2 (EVERY 2) WEEKS)

REACTIONS (2)
  - Off label use [Unknown]
  - Death [Fatal]
